FAERS Safety Report 12773702 (Version 1)
Quarter: 2016Q3

REPORT INFORMATION
  Report Type: Spontaneous
  Country: US (occurrence: US)
  Receive Date: 20160923
  Receipt Date: 20160923
  Transmission Date: 20161109
  Serious: Yes (Hospitalization)
  Sender: FDA-Public Use
  Company Number: US-ASTRAZENECA-2016SF00391

PATIENT
  Age: 77 Day
  Sex: Male
  Weight: 2.6 kg

DRUGS (3)
  1. SYNAGIS [Suspect]
     Active Substance: PALIVIZUMAB
     Indication: RESPIRATORY SYNCYTIAL VIRUS INFECTION
     Route: 030
     Dates: start: 20160827
  2. MULTIVITAMIN [Concomitant]
     Active Substance: VITAMINS
     Route: 048
     Dates: start: 20160712
  3. IRON VITAMIN [Concomitant]
     Route: 048
     Dates: start: 20160712

REACTIONS (1)
  - Corona virus infection [Unknown]

NARRATIVE: CASE EVENT DATE: 20160913
